FAERS Safety Report 10089325 (Version 1)
Quarter: 2014Q2

REPORT INFORMATION
  Report Type: Spontaneous
  Country: US (occurrence: None)
  Receive Date: 20140418
  Receipt Date: 20140418
  Transmission Date: 20141212
  Serious: Yes (Death, Hospitalization)
  Sender: FDA-Public Use
  Company Number: None

PATIENT
  Age: 80 Year
  Sex: Male
  Weight: 59.2 kg

DRUGS (3)
  1. 5-FU [Suspect]
     Dosage: DELAYED, DOSE REDUCTION TO LEVEL-1?
  2. LEUCOVORIN [Suspect]
     Dosage: DELAYED?
  3. ELOXATIN [Suspect]
     Dosage: DELAYED, DOSE REDUCTION TO LEVEL-1

REACTIONS (6)
  - Neutropenia [None]
  - Septic shock [None]
  - Pneumonia klebsiella [None]
  - Respiratory failure [None]
  - Hypotension [None]
  - Lung infection [None]
